FAERS Safety Report 9066846 (Version 1)
Quarter: 2013Q1

REPORT INFORMATION
  Report Type: Spontaneous
  Country: DE (occurrence: DE)
  Receive Date: 20130214
  Receipt Date: 20130214
  Transmission Date: 20140127
  Serious: Yes (Other)
  Sender: FDA-Public Use
  Company Number: DE-GLAXOSMITHKLINE-D0078786A

PATIENT
  Sex: Female

DRUGS (4)
  1. REQUIP-MODUTAB [Suspect]
     Indication: PARKINSON^S DISEASE
     Route: 048
  2. PIRIBEDIL [Suspect]
     Indication: PARKINSON^S DISEASE
     Dosage: 50MG UNKNOWN
     Route: 048
  3. AZILECT [Suspect]
     Indication: PARKINSON^S DISEASE
     Dosage: 1MG UNKNOWN
     Route: 048
  4. STALEVO [Suspect]
     Indication: PARKINSON^S DISEASE
     Route: 048

REACTIONS (4)
  - Road traffic accident [Unknown]
  - Fracture [Unknown]
  - Contusion [Unknown]
  - Haematoma [Unknown]
